FAERS Safety Report 15833458 (Version 2)
Quarter: 2019Q1

REPORT INFORMATION
  Report Type: Report from Study
  Country: None (occurrence: CA)
  Receive Date: 20190116
  Receipt Date: 20190125
  Transmission Date: 20190417
  Serious: Yes (Hospitalization)
  Sender: FDA-Public Use
  Company Number: CA-ABBVIE-19S-028-2623723-00

PATIENT
  Sex: Male
  Weight: 80 kg

DRUGS (1)
  1. LUPRON DEPOT [Suspect]
     Active Substance: LEUPROLIDE ACETATE
     Indication: PROSTATE CANCER
     Route: 030
     Dates: start: 20150618, end: 20151212

REACTIONS (2)
  - Aortic valve sclerosis [Recovering/Resolving]
  - Impaired work ability [Unknown]

NARRATIVE: CASE EVENT DATE: 201812
